FAERS Safety Report 9529389 (Version 1)
Quarter: 2013Q3

REPORT INFORMATION
  Report Type: Spontaneous
  Country: JP (occurrence: JP)
  Receive Date: 20130917
  Receipt Date: 20130917
  Transmission Date: 20140515
  Serious: Yes (Other)
  Sender: FDA-Public Use
  Company Number: JP-ROCHE-1273764

PATIENT
  Age: 4 Decade
  Sex: Male

DRUGS (5)
  1. HERCEPTIN [Suspect]
     Indication: GASTRIC CANCER
     Dosage: DOSAGE IS UNCERTAIN.
     Route: 041
  2. XELODA [Suspect]
     Indication: GASTRIC CANCER
     Dosage: 12 TABLETS DAILY
     Route: 048
  3. XELODA [Suspect]
     Route: 048
  4. XELODA [Suspect]
     Route: 048
  5. CISPLATIN [Concomitant]
     Dosage: DOSAGE IS UNCERTAIN.
     Route: 041

REACTIONS (5)
  - Stomatitis [Unknown]
  - General physical health deterioration [Unknown]
  - Abdominal pain [Unknown]
  - Palmar-plantar erythrodysaesthesia syndrome [Unknown]
  - Alopecia [Unknown]
